FAERS Safety Report 9683364 (Version 5)
Quarter: 2020Q3

REPORT INFORMATION
  Report Type: Other
  Country: US (occurrence: US)
  Receive Date: 20131112
  Receipt Date: 20200917
  Transmission Date: 20201103
  Serious: Yes (Hospitalization, Other)
  Sender: FDA-Public Use
  Company Number: US-ROCHE-1296597

PATIENT
  Age: 29 Year
  Sex: Female

DRUGS (6)
  1. MYCOPHENOLATE MOFETIL. [Suspect]
     Active Substance: MYCOPHENOLATE MOFETIL
     Indication: SYSTEMIC LUPUS ERYTHEMATOSUS
     Dosage: TOTAL OF 1000 MG DAILY
     Route: 048
     Dates: start: 201106, end: 20131025
  2. CYTOXAN [Concomitant]
     Active Substance: CYCLOPHOSPHAMIDE
  3. COUMADIN [Suspect]
     Active Substance: WARFARIN SODIUM
     Indication: ANTICOAGULANT THERAPY
     Route: 048
     Dates: start: 2008
  4. MYCOPHENOLATE MOFETIL. [Suspect]
     Active Substance: MYCOPHENOLATE MOFETIL
     Indication: LUPUS NEPHRITIS
     Route: 048
     Dates: start: 20090120, end: 20110120
  5. MYCOPHENOLATE MOFETIL. [Suspect]
     Active Substance: MYCOPHENOLATE MOFETIL
     Indication: PROTEINURIA
     Route: 048
     Dates: end: 20131025
  6. COUMADIN [Suspect]
     Active Substance: WARFARIN SODIUM
     Indication: ANTIPHOSPHOLIPID SYNDROME

REACTIONS (3)
  - Vaginal haemorrhage [Recovered/Resolved]
  - Exposure during pregnancy [Unknown]
  - Human chorionic gonadotropin positive [Recovered/Resolved]

NARRATIVE: CASE EVENT DATE: 20131026
